FAERS Safety Report 10230657 (Version 1)
Quarter: 2014Q2

REPORT INFORMATION
  Report Type: Spontaneous
  Country: GB (occurrence: GB)
  Receive Date: 20140611
  Receipt Date: 20140611
  Transmission Date: 20141212
  Serious: Yes (Other)
  Sender: FDA-Public Use
  Company Number: GB-TAKEDA-2014TUS004645

PATIENT
  Age: 64 Year
  Sex: Male
  Weight: 80 kg

DRUGS (4)
  1. FEBUXOSTAT [Suspect]
     Indication: GOUT
     Dosage: 80 MG, QD
     Route: 048
     Dates: start: 2013
  2. CANDESARTAN [Concomitant]
     Dosage: 4 MG, QD
  3. MOMETASONE [Concomitant]
     Dosage: 2 DF, QD
     Route: 045
  4. OMEPRAZOLE [Concomitant]
     Dosage: 1 DF, QD

REACTIONS (5)
  - Interstitial lung disease [Not Recovered/Not Resolved]
  - Bronchiectasis [Unknown]
  - Idiopathic pulmonary fibrosis [Not Recovered/Not Resolved]
  - Cough [Unknown]
  - Dyspnoea [Not Recovered/Not Resolved]
